FAERS Safety Report 11705069 (Version 1)
Quarter: 2015Q4

REPORT INFORMATION
  Report Type: Spontaneous
  Country: US (occurrence: US)
  Receive Date: 20151106
  Receipt Date: 20151106
  Transmission Date: 20160304
  Serious: No
  Sender: FDA-Public Use
  Company Number: US-WARNER CHILCOTT, LLC-1043854

PATIENT
  Sex: Female

DRUGS (2)
  1. NASAL PREPARATIONS [Concomitant]
     Active Substance: UNSPECIFIED INGREDIENT
  2. ENABLEX [Suspect]
     Active Substance: DARIFENACIN\DARIFENACIN HYDROBROMIDE
     Route: 048

REACTIONS (4)
  - Micturition disorder [Unknown]
  - Malaise [Unknown]
  - Dysuria [Unknown]
  - Dry mouth [Unknown]
